FAERS Safety Report 4362150-8 (Version None)
Quarter: 2004Q2

REPORT INFORMATION
  Report Type: 
  Country: None (occurrence: None)
  Receive Date: 20040517
  Receipt Date: 20040503
  Transmission Date: 20050107
  Serious: No
  Sender: FDA-Public Use
  Company Number: TPA2004A00284

PATIENT
  Age: 49 Year
  Sex: Male

DRUGS (7)
  1. ACTOS [Suspect]
     Indication: DIABETES MELLITUS
     Dosage: 15 MG, PER ORAL
     Route: 048
     Dates: start: 20030401
  2. GLUCOPHAGE [Concomitant]
  3. AMARYL [Concomitant]
  4. ENALAPRIL MALEATE [Concomitant]
  5. LIPITOR [Concomitant]
  6. PREMPRO 14/14 [Concomitant]
  7. ALEVE [Concomitant]

REACTIONS (5)
  - DIABETES MELLITUS INADEQUATE CONTROL [None]
  - EYE HAEMORRHAGE [None]
  - GLAUCOMA [None]
  - MACULAR OEDEMA [None]
  - WEIGHT INCREASED [None]
